FAERS Safety Report 8384254-5 (Version None)
Quarter: 2012Q2

REPORT INFORMATION
  Report Type: 
  Country: None (occurrence: None)
  Receive Date: 20120524
  Receipt Date: 20120514
  Transmission Date: 20120825
  Serious: Yes (Congenital Anomaly)
  Sender: FDA-Public Use
  Company Number: DE-TEVA-338767GER

PATIENT

DRUGS (4)
  1. URSODIOL [Concomitant]
     Route: 064
  2. CYCLOSPORINE [Concomitant]
     Route: 064
  3. MYCOPHENOLATE MOFETIL [Suspect]
     Route: 064
  4. PREDNISONE [Concomitant]
     Route: 064

REACTIONS (3)
  - PREMATURE BABY [None]
  - ATRIAL SEPTAL DEFECT [None]
  - BRAIN MALFORMATION [None]
